FAERS Safety Report 18324498 (Version 1)
Quarter: 2020Q3

REPORT INFORMATION
  Report Type: Spontaneous
  Country: DE (occurrence: DE)
  Receive Date: 20200929
  Receipt Date: 20200929
  Transmission Date: 20201103
  Serious: Yes (Other)
  Sender: FDA-Public Use
  Company Number: DE-MYLANLABS-2020M1081313

PATIENT
  Age: 53 Year
  Sex: Female
  Weight: 55 kg

DRUGS (2)
  1. PROPRA                             /00030001/ [Concomitant]
     Indication: MIGRAINE
     Dosage: 80 MILLIGRAM, QD
     Dates: start: 2000
  2. SUMATRIPTAN DURA 100 MG FILMTABLETTEN [Suspect]
     Active Substance: SUMATRIPTAN
     Indication: MIGRAINE
     Dosage: 100 MILLIGRAM, PRN(IM BEDARFSFALL ALL 6?8 STUNDEN EINE TABLETTE)
     Route: 048
     Dates: start: 20200201, end: 20200818

REACTIONS (5)
  - Adverse reaction [Unknown]
  - Arrhythmia [Recovered/Resolved]
  - Chest pain [Recovered/Resolved]
  - Chest discomfort [Recovered/Resolved]
  - Palpitations [Recovered/Resolved]
